FAERS Safety Report 8166766-2 (Version None)
Quarter: 2012Q1

REPORT INFORMATION
  Report Type: 
  Country: None (occurrence: None)
  Receive Date: 20120227
  Receipt Date: 20120209
  Transmission Date: 20120608
  Serious: Yes (Hospitalization)
  Sender: FDA-Public Use
  Company Number: CA-ROCHE-1039074

PATIENT
  Sex: Male
  Weight: 93 kg

DRUGS (9)
  1. FOLIC ACID [Concomitant]
  2. PREDNISONE [Concomitant]
  3. METFORMIN HCL [Concomitant]
     Indication: DIABETES MELLITUS
  4. ASPIRIN [Concomitant]
  5. CELEBREX [Concomitant]
  6. OXYCONTIN [Concomitant]
     Dosage: FREQUENCY: PRN
  7. GLICLAZIDE [Concomitant]
     Indication: DIABETES MELLITUS
  8. ACTEMRA [Suspect]
     Indication: RHEUMATOID ARTHRITIS
     Route: 042
     Dates: start: 20110316, end: 20120105
  9. METHOTREXATE [Concomitant]

REACTIONS (1)
  - ARTHROPATHY [None]
